FAERS Safety Report 18780354 (Version 2)
Quarter: 2021Q1

REPORT INFORMATION
  Report Type: Spontaneous
  Country: AU (occurrence: AU)
  Receive Date: 20210125
  Receipt Date: 20210126
  Transmission Date: 20210419
  Serious: Yes (Other)
  Sender: FDA-Public Use
  Company Number: AU-009507513-2101AUS009741

PATIENT
  Sex: Female

DRUGS (1)
  1. IMPLANON NXT [Suspect]
     Active Substance: ETONOGESTREL
     Indication: CONTRACEPTION
     Dosage: 1 IMPLANT (1 DOSAGE FORM)
     Route: 059

REACTIONS (3)
  - Unintended pregnancy [Unknown]
  - Device failure [Unknown]
  - Pregnancy with implant contraceptive [Unknown]
